FAERS Safety Report 8028710 (Version 4)
Quarter: 2013Q1

REPORT INFORMATION
  Report Type: Spontaneous
  Country: US (occurrence: US)
  Receive Date: 20110711
  Receipt Date: 20130123
  Transmission Date: 20140127
  Serious: Yes (Other)
  Sender: FDA-Public Use
  Company Number: US-ASTRAZENECA-2011SE39984

PATIENT
  Age: 52 Year
  Sex: Female
  Weight: 56.7 kg

DRUGS (2)
  1. NEXIUM [Suspect]
     Route: 048
  2. CALTRATE [Concomitant]

REACTIONS (16)
  - Lower limb fracture [Unknown]
  - Fall [Unknown]
  - Foot fracture [Recovering/Resolving]
  - Atrophy [Unknown]
  - Back pain [Unknown]
  - Contusion [Unknown]
  - Dyspepsia [Unknown]
  - Musculoskeletal stiffness [Unknown]
  - Osteopenia [Unknown]
  - Avulsion fracture [Unknown]
  - Bone pain [Unknown]
  - Nausea [Unknown]
  - Rash generalised [Unknown]
  - Local swelling [Recovering/Resolving]
  - Vomiting [Unknown]
  - Drug dose omission [Unknown]
